FAERS Safety Report 4611635-5 (Version None)
Quarter: 2005Q1

REPORT INFORMATION
  Report Type: 
  Country: None (occurrence: None)
  Receive Date: 20050317
  Receipt Date: 20050307
  Transmission Date: 20050727
  Serious: Yes (Other)
  Sender: FDA-Public Use
  Company Number: PHFR2005GB01132

PATIENT

DRUGS (1)
  1. TRILEPTAL [Suspect]
     Indication: EPILEPSY

REACTIONS (1)
  - NEUROTOXICITY [None]
